FAERS Safety Report 24296143 (Version 2)
Quarter: 2024Q3

REPORT INFORMATION
  Report Type: Spontaneous
  Country: US (occurrence: US)
  Receive Date: 20240909
  Receipt Date: 20240927
  Transmission Date: 20241016
  Serious: Yes (Hospitalization, Other)
  Sender: AUROBINDO
  Company Number: US-AUROBINDO-AUR-APL-2024-043421

PATIENT
  Age: 67 Year
  Sex: Female

DRUGS (3)
  1. METHOTREXATE [Suspect]
     Active Substance: METHOTREXATE
     Indication: Rheumatoid arthritis
     Dosage: 15 MILLIGRAM, EVERY WEEK
     Route: 048
  2. FOLIC ACID [Suspect]
     Active Substance: FOLIC ACID
     Indication: Rheumatoid arthritis
     Dosage: 1 MILLIGRAM, DAILY
     Route: 048
  3. FOLIC ACID [Suspect]
     Active Substance: FOLIC ACID
     Dosage: 2 MILLIGRAM, DAILY
     Route: 048

REACTIONS (5)
  - Oral disorder [Recovering/Resolving]
  - Stomatitis [Unknown]
  - Pancytopenia [Unknown]
  - Toxicity to various agents [Unknown]
  - Treatment noncompliance [Unknown]
